FAERS Safety Report 10171053 (Version 1)
Quarter: 2014Q2

REPORT INFORMATION
  Report Type: Spontaneous
  Country: US (occurrence: None)
  Receive Date: 20140512
  Receipt Date: 20140512
  Transmission Date: 20141212
  Serious: Yes (Hospitalization)
  Sender: FDA-Public Use
  Company Number: 2014P1003420

PATIENT
  Age: 54 Year
  Sex: Male
  Weight: 112.04 kg

DRUGS (10)
  1. LAMOTRIGINE [Suspect]
     Indication: EPILEPSY
     Route: 048
     Dates: start: 20130617
  2. AMLODIPINE [Concomitant]
  3. DEPAKOTE [Concomitant]
  4. MORPHINE LONG [Concomitant]
  5. ACTING [Concomitant]
  6. MORPHINE IR [Concomitant]
  7. OMEPRAZOLE [Concomitant]
  8. ONDANSETRON [Concomitant]
  9. PEG-MIRALAX [Concomitant]
  10. LIDOCAINE VISCOUS [Concomitant]

REACTIONS (2)
  - Lip and/or oral cavity cancer [None]
  - Dysphagia [None]
